FAERS Safety Report 19900234 (Version 4)
Quarter: 2024Q2

REPORT INFORMATION
  Report Type: Report from Study
  Country: FR (occurrence: FR)
  Receive Date: 20210929
  Receipt Date: 20240410
  Transmission Date: 20240716
  Serious: Yes (Other)
  Sender: FDA-Public Use
  Company Number: FR-ROCHE-2699740

PATIENT
  Age: 59 Year
  Sex: Female
  Weight: 50.2 kg

DRUGS (18)
  1. PACLITAXEL [Suspect]
     Active Substance: PACLITAXEL
     Indication: Non-small cell lung cancer
     Dosage: UNK
     Route: 065
     Dates: start: 20200409, end: 20200615
  2. PACLITAXEL [Suspect]
     Active Substance: PACLITAXEL
     Indication: Lung cancer metastatic
     Dosage: UNK
     Route: 065
  3. PACLITAXEL [Suspect]
     Active Substance: PACLITAXEL
     Indication: Non-small cell lung cancer metastatic
  4. BEVACIZUMAB [Suspect]
     Active Substance: BEVACIZUMAB
     Indication: Non-small cell lung cancer metastatic
     Dosage: ON UNSPECIFIED DATE, PATIENT RECEIVED 362.5
     Route: 042
     Dates: start: 20200409, end: 20200615
  5. BEVACIZUMAB [Suspect]
     Active Substance: BEVACIZUMAB
     Indication: Non-small cell lung cancer
     Dosage: PATIENT RECEIVED 362.5 (UNIT UNSPECIFIED)
     Route: 042
  6. ATEZOLIZUMAB [Suspect]
     Active Substance: ATEZOLIZUMAB
     Indication: Non-small cell lung cancer
     Dosage: 1200MG, Q3W (24/JUN TO 30/DEC IN 2019)
     Route: 042
     Dates: start: 20190513
  7. ATEZOLIZUMAB [Suspect]
     Active Substance: ATEZOLIZUMAB
     Indication: Non-small cell lung cancer metastatic
  8. XGEVA [Suspect]
     Active Substance: DENOSUMAB
     Indication: Non-small cell lung cancer metastatic
     Dosage: UNK
     Route: 065
  9. ELIQUIS [Concomitant]
     Active Substance: APIXABAN
     Dosage: UNK UNK, QD
     Route: 065
     Dates: start: 20200703
  10. ACETAMINOPHEN [Concomitant]
     Active Substance: ACETAMINOPHEN
     Dosage: UNK
     Route: 065
     Dates: start: 20190805
  11. CALCIUM\CHOLECALCIFEROL [Concomitant]
     Active Substance: CALCIUM\CHOLECALCIFEROL
     Dosage: UNK
     Route: 065
     Dates: start: 20190415
  12. FLECAINIDE ACETATE [Concomitant]
     Active Substance: FLECAINIDE ACETATE
     Dosage: UNK UNK, QD
     Route: 065
  13. DENOSUMAB [Concomitant]
     Active Substance: DENOSUMAB
     Dosage: UNK
     Route: 065
     Dates: start: 20190211
  14. KETOPROFEN [Concomitant]
     Active Substance: KETOPROFEN
     Dosage: UNK UNK, BID
     Route: 065
     Dates: start: 20200402, end: 20200404
  15. CHOLECALCIFEROL [Concomitant]
     Active Substance: CHOLECALCIFEROL
     Dosage: UNK UNK, QD
     Route: 065
     Dates: start: 20190211
  16. TRAMADOL [Concomitant]
     Active Substance: TRAMADOL\TRAMADOL HYDROCHLORIDE
     Dosage: UNK
     Route: 065
  17. CARBOPLATIN [Concomitant]
     Active Substance: CARBOPLATIN
     Indication: Neoplasm malignant
     Dosage: MEDICATION DOSE 420 (UNIT NOT SPECIFIED)
     Route: 065
  18. PEMETREXED [Concomitant]
     Active Substance: PEMETREXED
     Indication: Neoplasm malignant
     Dosage: MEDICATION DOSE 725 (UNIT NOT SEPCIFIED)
     Route: 065

REACTIONS (5)
  - Osteonecrosis of jaw [Recovered/Resolved]
  - Thrombosis [Recovered/Resolved]
  - Stomatitis [Recovered/Resolved]
  - Anaemia [Recovered/Resolved]
  - Mucosal inflammation [Recovered/Resolved]

NARRATIVE: CASE EVENT DATE: 20200409
